FAERS Safety Report 7470577-0 (Version None)
Quarter: 2011Q2

REPORT INFORMATION
  Report Type: 
  Country: None (occurrence: None)
  Receive Date: 20110510
  Receipt Date: 20110328
  Transmission Date: 20111010
  Serious: Yes (Hospitalization, Other)
  Sender: FDA-Public Use
  Company Number: US-BAYER-201039048NA

PATIENT
  Age: 24 Year
  Sex: Female
  Weight: 86.168 kg

DRUGS (6)
  1. YAZ [Suspect]
     Indication: MENSTRUATION IRREGULAR
     Dosage: UNK UNK, QD
     Route: 048
     Dates: start: 20020301, end: 20090801
  2. PHENTERMINE [Concomitant]
     Dosage: UNK
     Dates: start: 20070628
  3. MEDROXYPROGESTERONE [Concomitant]
     Indication: GENITAL HAEMORRHAGE
     Dosage: UNK
     Dates: start: 20041025
  4. METFORMIN HCL [Concomitant]
     Indication: INSULIN RESISTANCE
     Dosage: UNK
     Dates: start: 20041011
  5. YASMIN [Suspect]
     Indication: MENSTRUATION IRREGULAR
     Dosage: UNK
     Dates: start: 20020301, end: 20090801
  6. ACETAMINOPHEN [Concomitant]

REACTIONS (4)
  - GALLBLADDER NON-FUNCTIONING [None]
  - GALLBLADDER DISORDER [None]
  - GASTROINTESTINAL DISORDER [None]
  - CHOLECYSTITIS CHRONIC [None]
